FAERS Safety Report 4611546-5 (Version None)
Quarter: 2005Q2

REPORT INFORMATION
  Report Type: 
  Country: None (occurrence: None)
  Receive Date: 20050311
  Receipt Date: 20041208
  Transmission Date: 20051028
  Serious: No
  Sender: FDA-Public Use
  Company Number: 2004-BP-05570BP

PATIENT
  Age: 82 Year
  Sex: Female

DRUGS (11)
  1. SPIRIVA [Suspect]
     Indication: CHRONIC OBSTRUCTIVE PULMONARY DISEASE
     Dosage: 18 MCG (18 MCG), IH
     Route: 055
  2. SPIRIVA [Suspect]
     Indication: EMPHYSEMA
     Dosage: 18 MCG (18 MCG), IH
     Route: 055
  3. SPIRIVA [Suspect]
  4. PREDNISONE [Suspect]
     Indication: CHRONIC OBSTRUCTIVE PULMONARY DISEASE
     Dosage: 15 MG, 3 YEARS AGO
  5. SINGULAIR [Suspect]
     Indication: HYPERSENSITIVITY
     Dosage: 20 MG (20 MG AT BEDTIME), 3 WEEKS AGO
  6. ADVAIR DISKUS 100/50 [Concomitant]
  7. XANAX [Concomitant]
  8. MAXZIDE [Concomitant]
  9. VALIUM [Concomitant]
  10. TRAVATON [Concomitant]
  11. BETOPTIC S [Concomitant]

REACTIONS (8)
  - CONTUSION [None]
  - DIFFICULTY IN WALKING [None]
  - FALL [None]
  - FEELING ABNORMAL [None]
  - INTRAOCULAR PRESSURE INCREASED [None]
  - JOINT INJURY [None]
  - OEDEMA PERIPHERAL [None]
  - TREMOR [None]
